FAERS Safety Report 16437342 (Version 2)
Quarter: 2019Q2

REPORT INFORMATION
  Report Type: Spontaneous
  Country: AR (occurrence: AR)
  Receive Date: 20190615
  Receipt Date: 20190619
  Transmission Date: 20190711
  Serious: Yes (Death, Other)
  Sender: FDA-Public Use
  Company Number: AR-UNITED THERAPEUTICS-UNT-2019-010345

PATIENT

DRUGS (2)
  1. REMODULIN [Suspect]
     Active Substance: TREPROSTINIL
     Indication: NEWBORN PERSISTENT PULMONARY HYPERTENSION
     Dosage: 0.006 ?G/KG, CONTINUING
     Route: 041
  2. REMODULIN [Suspect]
     Active Substance: TREPROSTINIL
     Indication: NEWBORN PERSISTENT PULMONARY HYPERTENSION
     Dosage: UNK, CONTINUING
     Route: 058

REACTIONS (5)
  - Hypoxia [Fatal]
  - Pulmonary hypertension [Fatal]
  - Haemodynamic test abnormal [Fatal]
  - Drug ineffective [Unknown]
  - Drug titration error [Unknown]
